FAERS Safety Report 21113234 (Version 2)
Quarter: 2022Q3

REPORT INFORMATION
  Report Type: Spontaneous
  Country: US (occurrence: US)
  Receive Date: 20220721
  Receipt Date: 20220722
  Transmission Date: 20221027
  Serious: No
  Sender: FDA-Public Use
  Company Number: US-PFIZER INC-202200986443

PATIENT
  Age: 79 Year
  Sex: Male
  Weight: 113.4 kg

DRUGS (2)
  1. PAXLOVID [Suspect]
     Active Substance: NIRMATRELVIR\RITONAVIR
     Indication: COVID-19 treatment
     Dosage: 3 DF, 2X/DAY
     Dates: start: 20220719
  2. OZEMPIC [Concomitant]
     Active Substance: SEMAGLUTIDE
     Indication: Diabetes mellitus
     Dosage: 1 MG, WEEKLY (HE HAS 4 SHOTS IN THE PEN AND 4MG A PEN SO 1MG A DOSE)

REACTIONS (2)
  - Off label use [Unknown]
  - Wrong technique in product usage process [Unknown]
